FAERS Safety Report 16580419 (Version 1)
Quarter: 2019Q3

REPORT INFORMATION
  Report Type: Spontaneous
  Country: TH (occurrence: TH)
  Receive Date: 20190716
  Receipt Date: 20190716
  Transmission Date: 20191004
  Serious: Yes (Other)
  Sender: FDA-Public Use
  Company Number: PHHY2019TH160137

PATIENT
  Age: 24 Year

DRUGS (1)
  1. SCAPHO [Suspect]
     Active Substance: SECUKINUMAB
     Indication: PSORIASIS
     Dosage: 300 MG, QW
     Route: 065

REACTIONS (3)
  - Pyrexia [Unknown]
  - Acute disseminated encephalomyelitis [Unknown]
  - Asthenia [Unknown]
